FAERS Safety Report 7006394-5 (Version None)
Quarter: 2010Q3

REPORT INFORMATION
  Report Type: 
  Country: None (occurrence: None)
  Receive Date: 20100921
  Receipt Date: 20100913
  Transmission Date: 20110219
  Serious: Yes (Hospitalization)
  Sender: FDA-Public Use
  Company Number: GR-ABBOTT-10P-066-0664118-00

PATIENT
  Age: 81 Year
  Sex: Male
  Weight: 51 kg

DRUGS (14)
  1. ZEMPLAR [Suspect]
     Indication: HYPERPARATHYROIDISM SECONDARY
     Route: 042
     Dates: start: 20090109
  2. XEFO [Suspect]
     Indication: ARTHRALGIA
     Route: 048
  3. VASTAREL [Concomitant]
     Indication: ARTERIOSCLEROSIS
     Route: 048
     Dates: start: 20060101
  4. VASTAREL [Concomitant]
     Route: 048
  5. FORSENOL [Concomitant]
     Indication: HYPERPHOSPHATAEMIA
     Dosage: 750MG AT NOON AND 750MG IN THE EVENING
     Route: 048
     Dates: start: 20080101
  6. FORSENOL [Concomitant]
     Dosage: 750MG AT NOON AND 750MG IN THE EVENING
     Route: 048
  7. FILICINE [Concomitant]
     Indication: ANAEMIA
     Route: 048
     Dates: start: 20060101
  8. FILICINE [Concomitant]
     Route: 048
  9. RENAGEL [Concomitant]
     Indication: HYPERPHOSPHATAEMIA
     Dosage: 3 CAPS IN AM, 3 AT NOON AND 3 IN PM
     Route: 048
     Dates: start: 20060101
  10. RENAGEL [Concomitant]
     Dosage: 3 CAPS IN AM, 3 AT NOON AND 3 IN PM
     Route: 048
  11. LOPID [Concomitant]
     Indication: HYPERTRIGLYCERIDAEMIA
     Route: 048
     Dates: start: 20100101
  12. LOPID [Concomitant]
     Route: 048
  13. SUPERAMIN [Concomitant]
     Indication: MUSCULAR DYSTROPHY
     Route: 042
     Dates: start: 20060101
  14. SUPERAMIN [Concomitant]
     Route: 042

REACTIONS (2)
  - GASTRIC HAEMORRHAGE [None]
  - MELAENA [None]
